FAERS Safety Report 7486826-9 (Version None)
Quarter: 2011Q2

REPORT INFORMATION
  Report Type: 
  Country: None (occurrence: None)
  Receive Date: 20110517
  Receipt Date: 20110504
  Transmission Date: 20111010
  Serious: Yes (Hospitalization)
  Sender: FDA-Public Use
  Company Number: CHPA2011US06175

PATIENT
  Age: 3 Year
  Sex: Male
  Weight: 14.059 kg

DRUGS (4)
  1. PREVACID 24 HR [Suspect]
     Indication: GASTROOESOPHAGEAL REFLUX DISEASE
  2. PREVACID [Suspect]
     Indication: GASTROOESOPHAGEAL REFLUX DISEASE
     Dosage: 15 MG, QD
     Route: 048
     Dates: start: 20110406, end: 20110423
  3. PREVACID [Suspect]
     Dosage: 15 MG, ONCE/SINGLE
     Route: 048
     Dates: start: 20110426, end: 20110426
  4. PREVACID 24 HR [Suspect]
     Indication: ABDOMINAL PAIN UPPER
     Dosage: 15 MG, ONCE/SINGLE
     Route: 048
     Dates: start: 20110425, end: 20110425

REACTIONS (13)
  - STEVENS-JOHNSON SYNDROME [None]
  - PRURITUS [None]
  - OVERDOSE [None]
  - PYREXIA [None]
  - INCORRECT DOSE ADMINISTERED [None]
  - SWELLING [None]
  - WRONG TECHNIQUE IN DRUG USAGE PROCESS [None]
  - INCORRECT DRUG ADMINISTRATION DURATION [None]
  - RESTLESSNESS [None]
  - LIP SWELLING [None]
  - RASH [None]
  - BLOOD ALKALINE PHOSPHATASE INCREASED [None]
  - OFF LABEL USE [None]
